FAERS Safety Report 19888914 (Version 1)
Quarter: 2021Q3

REPORT INFORMATION
  Report Type: Spontaneous
  Country: US (occurrence: US)
  Receive Date: 20210927
  Receipt Date: 20210927
  Transmission Date: 20211014
  Serious: No
  Sender: FDA-Public Use
  Company Number: US-PFIZER INC-2021815089

PATIENT
  Age: 66 Year
  Sex: Female
  Weight: 98.41 kg

DRUGS (11)
  1. IBRANCE [Suspect]
     Active Substance: PALBOCICLIB
     Indication: BREAST CANCER
     Dosage: 125 MG, CYCLIC (DAILY FOR 21 DAYS)
     Route: 048
     Dates: start: 20210611
  2. OMEPRAZOLE. [Concomitant]
     Active Substance: OMEPRAZOLE
     Dosage: UNK
  3. LETROZOLE. [Concomitant]
     Active Substance: LETROZOLE
     Dosage: UNK
  4. NASOGEL [Concomitant]
     Dosage: UNK
  5. METHYLPREDNISOLONE. [Concomitant]
     Active Substance: METHYLPREDNISOLONE
     Dosage: UNK
  6. VOLTAREN [DICLOFENAC] [Concomitant]
     Active Substance: DICLOFENAC SODIUM
     Dosage: UNK
  7. FLUCONAZOLE. [Concomitant]
     Active Substance: FLUCONAZOLE
     Dosage: UNK
  8. VITAMIN D3 [Concomitant]
     Active Substance: CHOLECALCIFEROL
     Dosage: UNK
  9. IBRANCE [Suspect]
     Active Substance: PALBOCICLIB
     Dosage: 125 MG, CYCLIC (DAILY FOR 21 DAYS, THEN OFF FOR 7 DAYS)
     Route: 048
     Dates: start: 20210611, end: 202107
  10. MELOXICAM. [Concomitant]
     Active Substance: MELOXICAM
     Dosage: UNK
  11. BIOFREEZE [Concomitant]
     Active Substance: MENTHOL
     Dosage: UNK

REACTIONS (14)
  - Lip dry [Unknown]
  - Pruritus [Recovering/Resolving]
  - Diarrhoea [Unknown]
  - Nasal dryness [Recovering/Resolving]
  - Hot flush [Unknown]
  - Fungal infection [Not Recovered/Not Resolved]
  - Lip swelling [Unknown]
  - Skin exfoliation [Unknown]
  - White blood cell count decreased [Recovered/Resolved]
  - Fatigue [Unknown]
  - Hair growth abnormal [Unknown]
  - Epistaxis [Unknown]
  - Dry skin [Unknown]
  - Nasal congestion [Unknown]

NARRATIVE: CASE EVENT DATE: 202107
